FAERS Safety Report 13188386 (Version 2)
Quarter: 2017Q1

REPORT INFORMATION
  Report Type: Spontaneous
  Country: KR (occurrence: KR)
  Receive Date: 20170206
  Receipt Date: 20170210
  Transmission Date: 20170428
  Serious: Yes (Hospitalization, Other)
  Sender: FDA-Public Use
  Company Number: KR-009507513-1702KOR001601

PATIENT
  Age: 45 Year
  Sex: Female
  Weight: 43 kg

DRUGS (16)
  1. DEXAMETHASONE DAEWOO [Concomitant]
     Dosage: 8 TABLET, BID
     Route: 048
     Dates: start: 20160928, end: 20160928
  2. DEXAMETHASONE DAEWOO [Concomitant]
     Indication: PROPHYLAXIS OF NAUSEA AND VOMITING
     Dosage: 12 TABLET, BID
     Route: 048
     Dates: start: 20160926, end: 20160926
  3. ENTELON [Concomitant]
     Indication: PROPHYLAXIS
     Dosage: 150 MG, BID
     Route: 048
     Dates: start: 20160925, end: 20161226
  4. CARDIOXANE [Concomitant]
     Active Substance: DEXRAZOXANE HYDROCHLORIDE
     Indication: PROPHYLAXIS
     Dosage: 1 G, ONCE
     Route: 042
     Dates: start: 20160926, end: 20160926
  5. DEXAMETHASONE DAEWOO [Concomitant]
     Dosage: 8 TABLET, ONCE
     Route: 048
     Dates: start: 20160929, end: 20160929
  6. NASEA [Concomitant]
     Active Substance: RAMOSETRON HYDROCHLORIDE
     Indication: PROPHYLAXIS OF NAUSEA AND VOMITING
     Dosage: 0.1 MG, BID
     Route: 048
     Dates: start: 20160927, end: 20160927
  7. EMEND (FOSAPREPITANT DIMEGLUMINE) [Suspect]
     Active Substance: FOSAPREPITANT DIMEGLUMINE
     Dosage: 150 MG, ONCE, CYCLE 2
     Route: 042
     Dates: start: 20161027, end: 20161027
  8. SANCUSO [Concomitant]
     Active Substance: GRANISETRON
     Indication: PROPHYLAXIS OF NAUSEA AND VOMITING
     Dosage: STRENGTH: 80.2X66.6, 34.3 MG, ONCE
     Route: 062
     Dates: start: 20160925, end: 20160925
  9. EMEND (FOSAPREPITANT DIMEGLUMINE) [Suspect]
     Active Substance: FOSAPREPITANT DIMEGLUMINE
     Indication: PROPHYLAXIS OF NAUSEA AND VOMITING
     Dosage: 150 MG, ONCE, CYCLE 1
     Route: 042
     Dates: start: 20160926, end: 20160926
  10. ILDONG ADRIAMYCIN [Concomitant]
     Indication: CHEMOTHERAPY
     Dosage: 205.5 MG, ONCE, CYCLE 1
     Route: 042
     Dates: start: 20160926, end: 20160926
  11. EMEND (FOSAPREPITANT DIMEGLUMINE) [Suspect]
     Active Substance: FOSAPREPITANT DIMEGLUMINE
     Dosage: 150 MG, ONCE, CYCLE 3
     Route: 042
     Dates: start: 20161117, end: 20161117
  12. NASEA [Concomitant]
     Active Substance: RAMOSETRON HYDROCHLORIDE
     Indication: PROPHYLAXIS OF NAUSEA AND VOMITING
     Dosage: 0.3 MG, ONCE
     Route: 042
     Dates: start: 20160926, end: 20160926
  13. NASEA [Concomitant]
     Active Substance: RAMOSETRON HYDROCHLORIDE
     Dosage: 0.1 MG, ONCE
     Route: 048
     Dates: start: 20160928, end: 20160928
  14. EMEND (FOSAPREPITANT DIMEGLUMINE) [Suspect]
     Active Substance: FOSAPREPITANT DIMEGLUMINE
     Dosage: 150 MG, ONCE, CYCLE 4
     Route: 042
     Dates: start: 20161212, end: 20161212
  15. ENDOXAN [Concomitant]
     Active Substance: CYCLOPHOSPHAMIDE
     Indication: CHEMOTHERAPY
     Dosage: 800 MG, ONCE, CYCLE 1
     Route: 042
     Dates: start: 20160926, end: 20160926
  16. DEXAMETHASONE DAEWOO [Concomitant]
     Dosage: 8 TABLET, BID
     Route: 048
     Dates: start: 20160927, end: 20160927

REACTIONS (3)
  - Loss of consciousness [Unknown]
  - Febrile neutropenia [Recovered/Resolved]
  - Febrile neutropenia [Recovered/Resolved]

NARRATIVE: CASE EVENT DATE: 20161006
